FAERS Safety Report 6443333-X (Version None)
Quarter: 2009Q4

REPORT INFORMATION
  Report Type: 
  Country: None (occurrence: None)
  Receive Date: 20091113
  Receipt Date: 20091103
  Transmission Date: 20100525
  Serious: Yes (Hospitalization)
  Sender: FDA-Public Use
  Company Number: 232620J09USA

PATIENT
  Age: 45 Year
  Sex: Female

DRUGS (9)
  1. REBIF [Suspect]
     Indication: MULTIPLE SCLEROSIS
     Dosage: 44 MCG, 3 IN 1 WEEKS, SUBCUTANEOUS
     Route: 058
     Dates: start: 20070926, end: 20091027
  2. REBIF [Suspect]
     Indication: MULTIPLE SCLEROSIS
     Dosage: 44 MCG, 3 IN 1 WEEKS, SUBCUTANEOUS
     Route: 058
     Dates: start: 20091105
  3. BACLOFEN PUMP (BACLOFEN) [Concomitant]
  4. FOSAMAX [Concomitant]
  5. HIPREX [Concomitant]
  6. VITAMIN E [Concomitant]
  7. CRANBERRY (VACCINIUM MACROCARPON) [Concomitant]
  8. FISH OIL (FISH OIL) [Concomitant]
  9. FLAX SEED (LINUM USITATISSIMUM SEED OIL) [Concomitant]

REACTIONS (7)
  - COAGULATION TIME PROLONGED [None]
  - FEELING HOT [None]
  - FEMUR FRACTURE [None]
  - HIP FRACTURE [None]
  - JOINT EFFUSION [None]
  - URINARY TRACT INFECTION [None]
  - WHITE BLOOD CELL COUNT INCREASED [None]
